FAERS Safety Report 16510362 (Version 3)
Quarter: 2019Q3

REPORT INFORMATION
  Report Type: Spontaneous
  Country: US (occurrence: US)
  Receive Date: 20190702
  Receipt Date: 20190719
  Transmission Date: 20191004
  Serious: Yes (Other)
  Sender: FDA-Public Use
  Company Number: PHEH2019US027681

PATIENT
  Age: 60 Year
  Sex: Male

DRUGS (1)
  1. TREPROSTINIL. [Suspect]
     Active Substance: TREPROSTINIL
     Indication: PULMONARY ARTERIAL HYPERTENSION
     Dosage: 16 NG/KG/MIN
     Route: 042
     Dates: start: 20190620

REACTIONS (11)
  - Nausea [Unknown]
  - Oedema [Recovering/Resolving]
  - Localised oedema [Unknown]
  - Headache [Unknown]
  - Pain in extremity [Unknown]
  - Weight increased [Unknown]
  - Insomnia [Unknown]
  - Decreased appetite [Unknown]
  - Pain in jaw [Unknown]
  - Priapism [Unknown]
  - Oedema peripheral [Unknown]

NARRATIVE: CASE EVENT DATE: 20190625
